FAERS Safety Report 23864718 (Version 2)
Quarter: 2024Q2

REPORT INFORMATION
  Report Type: Spontaneous
  Country: AU (occurrence: AU)
  Receive Date: 20240516
  Receipt Date: 20240522
  Transmission Date: 20240716
  Serious: No
  Sender: FDA-Public Use
  Company Number: AU-NAPPMUNDI-GBR-2024-0116661

PATIENT
  Age: 95 Year
  Sex: Female

DRUGS (1)
  1. NORSPAN [Suspect]
     Active Substance: BUPRENORPHINE
     Indication: Product used for unknown indication
     Dosage: 5 MICROGRAM PER HOUR WEEKLY
     Route: 062

REACTIONS (1)
  - Incorrect product administration duration [Unknown]
